FAERS Safety Report 21498370 (Version 2)
Quarter: 2022Q4

REPORT INFORMATION
  Report Type: Spontaneous
  Country: DE (occurrence: DE)
  Receive Date: 20221024
  Receipt Date: 20221202
  Transmission Date: 20230113
  Serious: Yes (Other)
  Sender: FDA-Public Use
  Company Number: DE-NOVARTISPH-NVSC2022DE233450

PATIENT
  Sex: Male

DRUGS (10)
  1. RITUXIMAB [Suspect]
     Active Substance: RITUXIMAB
     Indication: Diffuse large B-cell lymphoma
     Dosage: UNK (WITH CHOP)
     Route: 065
     Dates: start: 20220131, end: 20220527
  2. RITUXIMAB [Suspect]
     Active Substance: RITUXIMAB
     Dosage: UNK (R-ICE)
     Route: 065
     Dates: start: 20220629, end: 20220720
  3. RITUXIMAB [Suspect]
     Active Substance: RITUXIMAB
     Dosage: UNK (R-DHAP)
     Route: 065
     Dates: start: 20220812, end: 20220812
  4. RITUXIMAB [Suspect]
     Active Substance: RITUXIMAB
     Dosage: UNK (WITH POLATUZUMAB)
     Route: 065
     Dates: start: 20220906, end: 20220906
  5. CARBOPLATIN [Suspect]
     Active Substance: CARBOPLATIN
     Indication: Diffuse large B-cell lymphoma
     Dosage: UNK ( R-ICE)
     Route: 065
     Dates: start: 20220629, end: 20220720
  6. ETOPOSIDE [Suspect]
     Active Substance: ETOPOSIDE
     Indication: Diffuse large B-cell lymphoma
     Dosage: UNK (R-ICE)
     Route: 065
     Dates: start: 20220629, end: 20220720
  7. IFOSFAMIDE [Suspect]
     Active Substance: IFOSFAMIDE
     Indication: Diffuse large B-cell lymphoma
     Dosage: UNK (R-ICE)
     Route: 065
     Dates: start: 20220629, end: 20220720
  8. POLATUZUMAB VEDOTIN [Suspect]
     Active Substance: POLATUZUMAB VEDOTIN
     Indication: Diffuse large B-cell lymphoma
     Dosage: UNK (WITH RITUXIMAB)
     Route: 065
     Dates: start: 20220906, end: 20220906
  9. CYCLOPHOSPHAMIDE\DOXORUBICIN\PREDNISONE\VINCRISTINE [Suspect]
     Active Substance: CYCLOPHOSPHAMIDE\DOXORUBICIN\PREDNISONE\VINCRISTINE
     Indication: Diffuse large B-cell lymphoma
     Dosage: UNK (WITH RITUXIMAB)
     Route: 065
     Dates: start: 20220131, end: 20220527
  10. CISPLATIN\CYTARABINE\DEXAMETHASONE [Suspect]
     Active Substance: CISPLATIN\CYTARABINE\DEXAMETHASONE
     Indication: Diffuse large B-cell lymphoma
     Dosage: UNK (R-DHAP)
     Route: 065
     Dates: start: 20220812, end: 20220812

REACTIONS (6)
  - Cerebral ischaemia [Unknown]
  - Arrhythmia [Unknown]
  - Vascular device infection [Unknown]
  - Diffuse large B-cell lymphoma [Not Recovered/Not Resolved]
  - COVID-19 [Unknown]
  - Pyrexia [Recovered/Resolved]
